FAERS Safety Report 8331918-5 (Version None)
Quarter: 2012Q2

REPORT INFORMATION
  Report Type: 
  Country: None (occurrence: None)
  Receive Date: 20120502
  Receipt Date: 20120420
  Transmission Date: 20120825
  Serious: Yes (Other)
  Sender: FDA-Public Use
  Company Number: NL-ELI_LILLY_AND_COMPANY-NL201204009262

PATIENT
  Sex: Female
  Weight: 57 kg

DRUGS (6)
  1. COLECALCIFEROL [Concomitant]
     Indication: VITAMIN D DEFICIENCY
     Dosage: 50000 IU, WEEKLY (1/W)
     Route: 048
  2. CELECOXIB [Concomitant]
     Indication: RHEUMATOID ARTHRITIS
     Dosage: 200 MG, BID
     Route: 048
     Dates: start: 20060101
  3. TRAMADOL HCL [Concomitant]
     Indication: PAIN
     Dosage: 1 DF, BID
     Route: 048
  4. TOPIRAMATE [Concomitant]
     Indication: EPILEPSY
     Dosage: 150 MG, BID
     Route: 048
     Dates: start: 20000101
  5. OMEPRAZOLE [Concomitant]
     Indication: GASTROINTESTINAL DISORDER
     Dosage: 40 MG, QD
     Route: 048
     Dates: start: 20020101
  6. FORTEO [Suspect]
     Indication: OSTEOPOROSIS
     Dosage: 20 UG, QD
     Route: 058
     Dates: start: 20101008

REACTIONS (3)
  - BONE PAIN [None]
  - SLEEP DISORDER [None]
  - BREAST CANCER [None]
